FAERS Safety Report 26184999 (Version 1)
Quarter: 2025Q4

REPORT INFORMATION
  Report Type: Spontaneous
  Country: CA (occurrence: CA)
  Receive Date: 20251222
  Receipt Date: 20251222
  Transmission Date: 20260118
  Serious: Yes (Hospitalization)
  Sender: MERCK SHARP & DOHME LLC
  Company Number: CA-009507513-2363049

PATIENT
  Age: 69 Year
  Sex: Male
  Weight: 70 kg

DRUGS (20)
  1. KEYTRUDA [Suspect]
     Active Substance: PEMBROLIZUMAB
     Indication: Squamous cell carcinoma of lung
     Route: 042
  2. PACLITAXEL [Suspect]
     Active Substance: PACLITAXEL
     Indication: Squamous cell carcinoma of lung
     Dosage: SOLUTION INTRAVENOUS
     Route: 065
  3. ASPIRIN [Concomitant]
     Active Substance: ASPIRIN
     Route: 065
  4. BIKTARVY [Concomitant]
     Active Substance: BICTEGRAVIR SODIUM\EMTRICITABINE\TENOFOVIR ALAFENAMIDE FUMARATE
     Route: 065
  5. BISOPROLOL [Concomitant]
     Active Substance: BISOPROLOL
     Route: 065
  6. BREZTRI [Concomitant]
     Active Substance: BUDESONIDE\FORMOTEROL\GLYCOPYRROLATE
     Dosage: AEROSOL, METERED DOSE
     Route: 065
  7. CARBOPLATIN [Concomitant]
     Active Substance: CARBOPLATIN
     Dosage: SOLUTION INTRAVENOUS
     Route: 065
  8. DUTASTERIDE [Concomitant]
     Active Substance: DUTASTERIDE
     Route: 065
  9. ELMIRON [Concomitant]
     Active Substance: PENTOSAN POLYSULFATE SODIUM
     Route: 065
  10. EZETIMIBE [Concomitant]
     Active Substance: EZETIMIBE
     Route: 065
  11. LEVOTHYROXINE [Concomitant]
     Active Substance: LEVOTHYROXINE
     Route: 065
  12. METFORMIN [Concomitant]
     Active Substance: METFORMIN HYDROCHLORIDE
     Route: 065
  13. OXAZEPAM [Concomitant]
     Active Substance: OXAZEPAM
     Route: 065
  14. PANTOPRAZOLE [Concomitant]
     Active Substance: PANTOPRAZOLE
     Dosage: POWDER FOR SOLUTION  INTRAVENOUS
     Route: 065
  15. POLYETHYLENE GLYCOL [Concomitant]
     Active Substance: POLYETHYLENE GLYCOL
     Route: 065
  16. PROCHLORPERAZINE [Concomitant]
     Active Substance: PROCHLORPERAZINE
     Route: 065
  17. ROSUVASTATIN [Concomitant]
     Active Substance: ROSUVASTATIN
     Route: 065
  18. TAMSULOSIN [Concomitant]
     Active Substance: TAMSULOSIN
     Route: 065
  19. VALSARTAN [Concomitant]
     Active Substance: VALSARTAN
     Route: 065
  20. VENTOLIN [Concomitant]
     Active Substance: ALBUTEROL SULFATE
     Dosage: INHALATION
     Route: 065

REACTIONS (6)
  - Asthenia [Recovered/Resolved]
  - Dehydration [Recovered/Resolved]
  - Pyrexia [Recovered/Resolved]
  - Large intestine infection [Recovered/Resolved]
  - Diarrhoea [Recovered/Resolved]
  - Decreased appetite [Recovered/Resolved]
